FAERS Safety Report 17390559 (Version 1)
Quarter: 2020Q1

REPORT INFORMATION
  Report Type: Spontaneous
  Country: US (occurrence: US)
  Receive Date: 20200207
  Receipt Date: 20200207
  Transmission Date: 20200409
  Serious: No
  Sender: FDA-Public Use
  Company Number: US-PRAGMA PHARMACEUTICALS, LLC-2019PRG00167

PATIENT
  Age: 46 Year
  Sex: Female
  Weight: 47.62 kg

DRUGS (3)
  1. KEFLEX [Suspect]
     Active Substance: CEPHALEXIN
     Indication: BLOOD URINE PRESENT
     Dosage: 1000 MG, ONCE
     Dates: start: 20180121, end: 20180121
  2. EMERGEN-C [Suspect]
     Active Substance: VITAMINS
     Indication: INFLUENZA
     Dosage: 1 PACKET, 1X/DAY IN THE MORNING
     Dates: start: 20180112, end: 20180125
  3. KEFLEX [Suspect]
     Active Substance: CEPHALEXIN
     Dosage: 500 MG, 3X/DAY
     Dates: start: 20180121, end: 20180122

REACTIONS (13)
  - Hallucination, visual [Unknown]
  - Blood pressure fluctuation [Not Recovered/Not Resolved]
  - Psychomotor hyperactivity [Unknown]
  - Aspartate aminotransferase increased [Not Recovered/Not Resolved]
  - Insomnia [Not Recovered/Not Resolved]
  - Paraesthesia [Not Recovered/Not Resolved]
  - Chills [Not Recovered/Not Resolved]
  - Unresponsive to stimuli [Unknown]
  - Euphoric mood [Recovered/Resolved]
  - Alanine aminotransferase increased [Not Recovered/Not Resolved]
  - Heart rate increased [Not Recovered/Not Resolved]
  - Dizziness [Recovered/Resolved]
  - Intentional product misuse [Recovered/Resolved]

NARRATIVE: CASE EVENT DATE: 201801
